FAERS Safety Report 5500445-2 (Version None)
Quarter: 2007Q4

REPORT INFORMATION
  Report Type: 
  Country: None (occurrence: None)
  Receive Date: 20071029
  Receipt Date: 20071018
  Transmission Date: 20080405
  Serious: Yes (Other)
  Sender: FDA-Public Use
  Company Number: GR-ROCHE-525651

PATIENT
  Age: 53 Year
  Sex: Male

DRUGS (2)
  1. XENICAL [Suspect]
     Indication: DRUG USE FOR UNKNOWN INDICATION
     Dosage: TEMPORARILY INTERRUPTED.
     Route: 065
  2. XENICAL [Suspect]
     Dosage: RECEIVED OCCASSIONALLY.
     Route: 065

REACTIONS (2)
  - CONSTIPATION [None]
  - DRUG INEFFECTIVE [None]
